FAERS Safety Report 18628068 (Version 1)
Quarter: 2020Q4

REPORT INFORMATION
  Report Type: Spontaneous
  Country: US (occurrence: US)
  Receive Date: 20201216
  Receipt Date: 20201216
  Transmission Date: 20210114
  Serious: Yes (Hospitalization)
  Sender: FDA-Public Use
  Company Number: None

PATIENT
  Age: 70 Year
  Sex: Male

DRUGS (1)
  1. WARFARIN (WARFARIN NA (EXELAN) 5MG TAB) [Suspect]
     Active Substance: WARFARIN SODIUM
     Indication: ATRIAL FIBRILLATION
     Route: 048
     Dates: end: 20200930

REACTIONS (6)
  - Haemorrhage [None]
  - Subdural haematoma [None]
  - Injury [None]
  - Anticoagulation drug level below therapeutic [None]
  - Fall [None]
  - Anaemia [None]

NARRATIVE: CASE EVENT DATE: 20200928
